FAERS Safety Report 15689859 (Version 1)
Quarter: 2018Q4

REPORT INFORMATION
  Report Type: Spontaneous
  Country: CA (occurrence: CA)
  Receive Date: 20181205
  Receipt Date: 20181205
  Transmission Date: 20190205
  Serious: Yes (Other)
  Sender: FDA-Public Use
  Company Number: CA-SHIRE-CA201846583

PATIENT

DRUGS (1)
  1. XIIDRA [Suspect]
     Active Substance: LIFITEGRAST
     Indication: PRODUCT USED FOR UNKNOWN INDICATION
     Dosage: UNK, 2X/DAY:BID
     Route: 047

REACTIONS (6)
  - Swelling of eyelid [Unknown]
  - Instillation site pain [Unknown]
  - Instillation site erythema [Unknown]
  - Instillation site hypersensitivity [Unknown]
  - Drug intolerance [Unknown]
  - Punctate keratitis [Unknown]
